FAERS Safety Report 4622500-1 (Version None)
Quarter: 2005Q1

REPORT INFORMATION
  Report Type: 
  Country: None (occurrence: None)
  Receive Date: 20050330
  Receipt Date: 20021018
  Transmission Date: 20050727
  Serious: Yes (Death)
  Sender: FDA-Public Use
  Company Number: JP-ROCHE-323772

PATIENT
  Age: 38 Year
  Sex: Male
  Weight: 75.8 kg

DRUGS (23)
  1. MYCOPHENOLATE MOFETIL [Suspect]
     Route: 048
     Dates: start: 20020508, end: 20020508
  2. MYCOPHENOLATE MOFETIL [Suspect]
     Route: 048
     Dates: start: 20020509, end: 20020509
  3. MYCOPHENOLATE MOFETIL [Suspect]
     Route: 048
     Dates: start: 20020510, end: 20020528
  4. MYCOPHENOLATE MOFETIL [Suspect]
     Route: 048
     Dates: start: 20020529, end: 20020529
  5. MYCOPHENOLATE MOFETIL [Suspect]
     Route: 048
     Dates: start: 20020530, end: 20020905
  6. MYCOPHENOLATE MOFETIL [Suspect]
     Route: 048
     Dates: start: 20020906, end: 20020906
  7. MYCOPHENOLATE MOFETIL [Suspect]
     Route: 048
     Dates: start: 20020907, end: 20021010
  8. NEORAL [Suspect]
     Route: 042
     Dates: start: 20020508, end: 20021011
  9. SANDIMMUNE [Suspect]
     Route: 048
     Dates: start: 20020509, end: 20020512
  10. MEDROL [Suspect]
     Route: 048
     Dates: start: 20020508, end: 20021011
  11. SOLU-MEDROL [Concomitant]
     Route: 041
     Dates: start: 20020509, end: 20020509
  12. SIMULECT [Concomitant]
     Dosage: 20 MG TWICE IN SPECIFIED PERIOD.
     Route: 042
     Dates: start: 20020509, end: 20020513
  13. MAGNESIUM CITRATE [Concomitant]
     Indication: PREOPERATIVE CARE
     Route: 048
     Dates: start: 20020508, end: 20020508
  14. ALUMINIUM HYDROXIDE/MAGNESIUM HYDROXIDE [Concomitant]
     Route: 048
     Dates: start: 20020509, end: 20021010
  15. MAGNESIUM OXIDE [Concomitant]
     Indication: CONSTIPATION
     Dosage: 1 GRAM PRN, 10 TIMES.
     Route: 048
     Dates: start: 20021012
  16. LASIX [Concomitant]
     Dosage: 20 MG PER DAY PRN.
     Route: 048
     Dates: start: 20020513
  17. FUNGIZONE [Concomitant]
     Route: 048
     Dates: start: 20020528, end: 20020530
  18. ACECOL [Concomitant]
     Indication: HYPERTENSION
     Route: 048
     Dates: start: 20020530, end: 20021010
  19. BASEN [Concomitant]
     Indication: DIABETES MELLITUS
     Route: 048
     Dates: start: 20020531, end: 20021010
  20. ARTIST [Concomitant]
     Route: 048
     Dates: start: 20020601, end: 20021010
  21. BAKTAR [Concomitant]
     Indication: PROPHYLAXIS
     Route: 048
     Dates: start: 20020110, end: 20021010
  22. MAGCOROL [Concomitant]
     Dates: start: 20020508, end: 20020508
  23. 1 DRUG [Concomitant]
     Dosage: MALFA
     Dates: start: 20020509, end: 20021010

REACTIONS (6)
  - CANDIDIASIS [None]
  - CHOLECYSTITIS ACUTE [None]
  - CONSTIPATION [None]
  - OROPHARYNGITIS FUNGAL [None]
  - PNEUMONIA [None]
  - PYELONEPHRITIS [None]
